FAERS Safety Report 9915780 (Version 1)
Quarter: 2014Q1

REPORT INFORMATION
  Report Type: Spontaneous
  Country: US (occurrence: None)
  Receive Date: 20140218
  Receipt Date: 20140218
  Transmission Date: 20141002
  Serious: Yes (Other)
  Sender: FDA-Public Use
  Company Number: 2014IL0047

PATIENT
  Age: 8 Year
  Sex: Female

DRUGS (2)
  1. ANAKINRA [Suspect]
     Dosage: 2 MG/KG (2 MG/KG, 1 IN 1 D)
     Route: 058
     Dates: start: 201401, end: 2014
  2. METHYLPREDNISOLONE ACETATE [Concomitant]

REACTIONS (3)
  - Leukopenia [None]
  - Neutropenia [None]
  - Pyrexia [None]
